FAERS Safety Report 14513280 (Version 1)
Quarter: 2018Q1

REPORT INFORMATION
  Report Type: Spontaneous
  Country: US (occurrence: US)
  Receive Date: 20180209
  Receipt Date: 20180209
  Transmission Date: 20180509
  Serious: No
  Sender: FDA-Public Use
  Company Number: US-ALLERGAN-1721737US

PATIENT
  Age: 58 Year
  Sex: Male

DRUGS (2)
  1. GENTEAL MODERATE TO SEVERE GEL DROPS [Concomitant]
     Active Substance: CARBOXYMETHYLCELLULOSE SODIUM\HYPROMELLOSES
     Indication: DRY EYE
     Dosage: UNK UNK, PRN
     Route: 047
  2. RESTASIS [Suspect]
     Active Substance: CYCLOSPORINE
     Indication: DRY EYE
     Dosage: 2 GTT, PRN
     Route: 047
     Dates: start: 2015

REACTIONS (6)
  - Expired product administered [Unknown]
  - Product storage error [Unknown]
  - Inappropriate schedule of drug administration [Unknown]
  - Blood glucose increased [Recovering/Resolving]
  - Vision blurred [Not Recovered/Not Resolved]
  - Wrong technique in product usage process [Unknown]

NARRATIVE: CASE EVENT DATE: 20170424
